FAERS Safety Report 7372401-3 (Version None)
Quarter: 2011Q1

REPORT INFORMATION
  Report Type: 
  Country: None (occurrence: None)
  Receive Date: 20110324
  Receipt Date: 20110317
  Transmission Date: 20110831
  Serious: Yes (Hospitalization)
  Sender: FDA-Public Use
  Company Number: BR-US-EMD SERONO, INC.-7048635

PATIENT
  Sex: Female

DRUGS (4)
  1. REBIF [Suspect]
     Indication: RELAPSING-REMITTING MULTIPLE SCLEROSIS
     Dates: start: 20080304
  2. LIORESAL [Concomitant]
  3. LYRICA [Concomitant]
  4. TOLTERODINE TARTRATE [Concomitant]

REACTIONS (5)
  - MULTIPLE SCLEROSIS RELAPSE [None]
  - MYALGIA [None]
  - INJECTION SITE ERYTHEMA [None]
  - PYREXIA [None]
  - URINARY TRACT INFECTION [None]
